FAERS Safety Report 8975863 (Version 5)
Quarter: 2014Q1

REPORT INFORMATION
  Report Type: Spontaneous
  Country: US (occurrence: US)
  Receive Date: 20121219
  Receipt Date: 20140116
  Transmission Date: 20141002
  Serious: Yes (Death, Hospitalization)
  Sender: FDA-Public Use
  Company Number: US-GLAXOSMITHKLINE-A0993133A

PATIENT
  Age: 53 Year
  Sex: Female

DRUGS (3)
  1. FLOLAN [Suspect]
     Indication: COR PULMONALE CHRONIC
     Dosage: 12.5NGKM CONTINUOUS
     Route: 065
     Dates: start: 20081217, end: 20130502
  2. COUMADIN [Concomitant]
  3. LASIX [Concomitant]

REACTIONS (8)
  - Lung carcinoma cell type unspecified recurrent [Not Recovered/Not Resolved]
  - Death [Fatal]
  - Weight decreased [Unknown]
  - Device leakage [Unknown]
  - Malaise [Unknown]
  - Pallor [Unknown]
  - Dizziness [Unknown]
  - Adverse event [Unknown]
